FAERS Safety Report 7121059-7 (Version None)
Quarter: 2010Q4

REPORT INFORMATION
  Report Type: 
  Country: None (occurrence: None)
  Receive Date: 20101124
  Receipt Date: 20101116
  Transmission Date: 20110411
  Serious: Yes (Hospitalization, Other)
  Sender: FDA-Public Use
  Company Number: US-JNJFOC-20100806261

PATIENT
  Sex: Female

DRUGS (3)
  1. LEVAQUIN [Suspect]
     Indication: DIVERTICULITIS
     Route: 048
  2. LEVAQUIN [Suspect]
     Indication: ILL-DEFINED DISORDER
     Route: 042
  3. WELLBUTRIN [Concomitant]

REACTIONS (4)
  - MUSCLE RUPTURE [None]
  - PERONEAL NERVE PALSY [None]
  - TENDON DISORDER [None]
  - TENDON RUPTURE [None]
